FAERS Safety Report 4462005-4 (Version None)
Quarter: 2004Q3

REPORT INFORMATION
  Report Type: 
  Country: None (occurrence: None)
  Receive Date: 20040823
  Receipt Date: 20040908
  Transmission Date: 20050211
  Serious: Yes (Hospitalization)
  Sender: FDA-Public Use
  Company Number: 6010369F

PATIENT
  Age: 62 Year
  Sex: Male

DRUGS (1)
  1. NIASPAN [Suspect]
     Indication: HIGH DENSITY LIPOPROTEIN DECREASED
     Dosage: 750 MG QD PO
     Route: 048

REACTIONS (2)
  - CIRCULATORY COLLAPSE [None]
  - FLUSHING [None]
